FAERS Safety Report 13237966 (Version 1)
Quarter: 2017Q1

REPORT INFORMATION
  Report Type: Spontaneous
  Country: US (occurrence: US)
  Receive Date: 20170216
  Receipt Date: 20170216
  Transmission Date: 20170428
  Serious: No
  Sender: FDA-Public Use
  Company Number: US-ASTRAZENECA-2017SE15037

PATIENT
  Sex: Female

DRUGS (2)
  1. SUBOXONE [Concomitant]
     Active Substance: BUPRENORPHINE HYDROCHLORIDE\NALOXONE HYDROCHLORIDE
     Dosage: CUTS ONE SUBOXONE PILL, DOSE UNKNOWN, AND TAKES PARTS OF IT FOUR TIMES A DAY
  2. MOVANTIK [Suspect]
     Active Substance: NALOXEGOL OXALATE
     Indication: CONSTIPATION
     Dosage: 25.0MG UNKNOWN
     Route: 048

REACTIONS (6)
  - Yawning [Unknown]
  - Drug withdrawal syndrome [Unknown]
  - Pyrexia [Unknown]
  - Chills [Unknown]
  - Hyperhidrosis [Unknown]
  - Gastrointestinal pain [Unknown]
